FAERS Safety Report 4471365-X (Version None)
Quarter: 2004Q4

REPORT INFORMATION
  Report Type: 
  Country: None (occurrence: None)
  Receive Date: 20041006
  Receipt Date: 20040928
  Transmission Date: 20050328
  Serious: Yes (Other)
  Sender: FDA-Public Use
  Company Number: 2004235764US

PATIENT
  Age: 55 Year
  Sex: Female

DRUGS (4)
  1. PROVERA [Suspect]
     Indication: HORMONE REPLACEMENT THERAPY
     Dates: start: 19950101, end: 19980101
  2. PREMARIN [Suspect]
     Dates: start: 19950101, end: 19980101
  3. PREMPRO [Suspect]
     Dates: start: 19980101, end: 20020101
  4. ACTIVELLA (ESTRADIOL, NORETHINDRONE) [Suspect]
     Dates: start: 20020101, end: 20030101

REACTIONS (1)
  - BREAST CANCER FEMALE [None]
